FAERS Safety Report 15739777 (Version 2)
Quarter: 2019Q1

REPORT INFORMATION
  Report Type: Spontaneous
  Country: US (occurrence: US)
  Receive Date: 20181219
  Receipt Date: 20190116
  Transmission Date: 20190417
  Serious: No
  Sender: FDA-Public Use
  Company Number: PHEH2018US052004

PATIENT

DRUGS (1)
  1. DUREZOL [Suspect]
     Active Substance: DIFLUPREDNATE
     Indication: PROCEDURAL PAIN
     Dosage: 1 GTT, UNK
     Route: 047

REACTIONS (1)
  - Eye inflammation [Recovering/Resolving]
